FAERS Safety Report 16209918 (Version 8)
Quarter: 2019Q3

REPORT INFORMATION
  Report Type: Report from Study
  Country: BR (occurrence: BR)
  Receive Date: 20190417
  Receipt Date: 20190924
  Transmission Date: 20191004
  Serious: Yes (Hospitalization, Other)
  Sender: FDA-Public Use
  Company Number: PHHY2019BR088461

PATIENT
  Age: 69 Year
  Sex: Female

DRUGS (6)
  1. COSENTYX [Suspect]
     Active Substance: SECUKINUMAB
     Indication: PRODUCT USED FOR UNKNOWN INDICATION
     Dosage: UNK
     Route: 065
     Dates: start: 20180320
  2. COSENTYX [Suspect]
     Active Substance: SECUKINUMAB
     Dosage: 300 MG, QMO
     Route: 065
     Dates: start: 20180822
  3. COSENTYX [Suspect]
     Active Substance: SECUKINUMAB
     Dosage: 300 MG, QMO
     Route: 065
     Dates: start: 20190129
  4. COSENTYX [Suspect]
     Active Substance: SECUKINUMAB
     Dosage: 300 MG, UNK
     Route: 065
     Dates: start: 201804
  5. COSENTYX [Suspect]
     Active Substance: SECUKINUMAB
     Dosage: 300 MG, QMO
     Route: 065
     Dates: start: 201811
  6. COSENTYX [Suspect]
     Active Substance: SECUKINUMAB
     Dosage: 300 MG, QMO
     Route: 065
     Dates: start: 20181227

REACTIONS (17)
  - Pain [Recovering/Resolving]
  - Kidney infection [Not Recovered/Not Resolved]
  - Pruritus [Unknown]
  - Cataract [Unknown]
  - Skin exfoliation [Unknown]
  - Inflammation [Unknown]
  - Skin lesion [Unknown]
  - Renal impairment [Unknown]
  - Eye infection [Unknown]
  - Cholelithiasis [Recovered/Resolved]
  - Nephrolithiasis [Recovered/Resolved]
  - Malaise [Unknown]
  - Conjunctivitis [Recovered/Resolved]
  - Eye irritation [Unknown]
  - Urinary tract infection [Recovered/Resolved]
  - Infection [Unknown]
  - Injury [Unknown]

NARRATIVE: CASE EVENT DATE: 201905
